FAERS Safety Report 7948697-3 (Version None)
Quarter: 2011Q4

REPORT INFORMATION
  Report Type: 
  Country: None (occurrence: None)
  Receive Date: 20111130
  Receipt Date: 20111130
  Transmission Date: 20120403
  Serious: Yes (Hospitalization)
  Sender: FDA-Public Use
  Company Number: None

PATIENT
  Sex: Female
  Weight: 59.7 kg

DRUGS (1)
  1. OVCON-35 [Suspect]
     Indication: MENSTRUAL DISORDER
     Route: 048

REACTIONS (1)
  - DEEP VEIN THROMBOSIS [None]
